FAERS Safety Report 4435292-6 (Version None)
Quarter: 2004Q3

REPORT INFORMATION
  Report Type: 
  Country: None (occurrence: None)
  Receive Date: 20040827
  Receipt Date: 20040827
  Transmission Date: 20050211
  Serious: Yes (Hospitalization)
  Sender: FDA-Public Use
  Company Number: None

PATIENT
  Sex: Female
  Weight: 64.7 kg

DRUGS (1)
  1. FANT/TIB/T TISSUE 10.0MM X 31.5 CM LIFENET [Suspect]
     Indication: POSTOPERATIVE INFECTION
     Dates: start: 20040405, end: 20040803

REACTIONS (7)
  - COMPLICATIONS OF TRANSPLANT SURGERY [None]
  - GRAFT INFECTION [None]
  - JOINT EFFUSION [None]
  - PYREXIA [None]
  - REMOVAL OF TRANSPLANTED ORGAN [None]
  - RESPIRATORY RATE INCREASED [None]
  - STAPHYLOCOCCAL INFECTION [None]
